FAERS Safety Report 4270463-3 (Version None)
Quarter: 2004Q1

REPORT INFORMATION
  Report Type: 
  Country: None (occurrence: None)
  Receive Date: 20040114
  Receipt Date: 20040102
  Transmission Date: 20041129
  Serious: No
  Sender: FDA-Public Use
  Company Number: DK-GLAXOSMITHKLINE-B0318931A

PATIENT
  Sex: Female

DRUGS (3)
  1. LAMICTAL [Suspect]
     Indication: DEPRESSION
     Route: 048
     Dates: start: 20030519
  2. VENLAFAXINE HCL [Concomitant]
     Dates: start: 19990823
  3. LITHIUM CITRATE [Concomitant]
     Dates: start: 19900206

REACTIONS (1)
  - DYSPHONIA [None]
